FAERS Safety Report 6331518-2 (Version None)
Quarter: 2009Q3

REPORT INFORMATION
  Report Type: 
  Country: None (occurrence: None)
  Receive Date: 20090817
  Receipt Date: 20090325
  Transmission Date: 20100115
  Serious: No
  Sender: FDA-Public Use
  Company Number: 20096429

PATIENT
  Sex: Female

DRUGS (1)
  1. LIORESAL [Suspect]
     Indication: MUSCLE SPASTICITY
     Dosage: 50 MCG, DAILY, INTRATHECAL
     Route: 037

REACTIONS (4)
  - HEADACHE [None]
  - INTRACRANIAL HYPOTENSION [None]
  - VIRAL INFECTION [None]
  - VOMITING [None]
